FAERS Safety Report 13449691 (Version 2)
Quarter: 2017Q4

REPORT INFORMATION
  Report Type: Spontaneous
  Country: US (occurrence: US)
  Receive Date: 20170417
  Receipt Date: 20171003
  Transmission Date: 20180320
  Serious: No
  Sender: FDA-Public Use
  Company Number: US-GALDERMA-US17000997

PATIENT
  Age: 40 Year
  Sex: Male

DRUGS (3)
  1. ORACEA [Concomitant]
     Active Substance: DOXYCYCLINE
     Route: 048
     Dates: start: 20161212, end: 20170620
  2. SOOLANTRA [Suspect]
     Active Substance: IVERMECTIN
     Indication: PRODUCT USED FOR UNKNOWN INDICATION
     Dosage: 1%
     Route: 061
     Dates: start: 20161212, end: 20170206
  3. MIRVASO [Concomitant]
     Active Substance: BRIMONIDINE TARTRATE
     Dosage: 0.33
     Route: 061
     Dates: start: 20161212, end: 20170620

REACTIONS (3)
  - Pain of skin [Recovering/Resolving]
  - Erythema [Not Recovered/Not Resolved]
  - Skin burning sensation [Recovering/Resolving]

NARRATIVE: CASE EVENT DATE: 20161212
